FAERS Safety Report 20444303 (Version 1)
Quarter: 2022Q1

REPORT INFORMATION
  Report Type: Spontaneous
  Country: FR (occurrence: FR)
  Receive Date: 20220208
  Receipt Date: 20220208
  Transmission Date: 20220423
  Serious: Yes (Other)
  Sender: FDA-Public Use
  Company Number: None

PATIENT
  Age: 25 Year
  Sex: Female

DRUGS (4)
  1. LYRICA [Suspect]
     Active Substance: PREGABALIN
     Dosage: SINGLE INTAKE OF 4 LYRICA BLISTERS
  2. ALCOHOL [Suspect]
     Active Substance: ALCOHOL
     Dosage: 1 LITER STRONG BEER
  3. TRIMEPRAZINE [Suspect]
     Active Substance: TRIMEPRAZINE
  4. OXAZEPAM [Suspect]
     Active Substance: OXAZEPAM
     Dosage: SINGLE INTAKE OF THE WHOLE BOX

REACTIONS (4)
  - Intentional overdose [Unknown]
  - Depressed level of consciousness [Unknown]
  - Drug dependence [Unknown]
  - Toxicity to various agents [Unknown]
